FAERS Safety Report 9707445 (Version 1)
Quarter: 2013Q4

REPORT INFORMATION
  Report Type: Spontaneous
  Country: US (occurrence: US)
  Receive Date: 20131125
  Receipt Date: 20131125
  Transmission Date: 20140711
  Serious: No
  Sender: FDA-Public Use
  Company Number: US-TEVA-374699USA

PATIENT
  Age: 34 Year
  Sex: Female
  Weight: 58.57 kg

DRUGS (1)
  1. PARAGARD 380A [Suspect]
     Dates: start: 20121129

REACTIONS (3)
  - Pain [Recovered/Resolved]
  - Vaginal discharge [Not Recovered/Not Resolved]
  - Dysmenorrhoea [Not Recovered/Not Resolved]
